FAERS Safety Report 13430975 (Version 1)
Quarter: 2017Q2

REPORT INFORMATION
  Report Type: Spontaneous
  Country: FR (occurrence: FR)
  Receive Date: 20170412
  Receipt Date: 20170412
  Transmission Date: 20170830
  Serious: Yes (Hospitalization)
  Sender: FDA-Public Use
  Company Number: FR-PFIZER INC-2017153284

PATIENT
  Age: 85 Year
  Sex: Female
  Weight: 52 kg

DRUGS (17)
  1. FLUOROURACIL ACCORD [Suspect]
     Active Substance: FLUOROURACIL
     Indication: ADENOCARCINOMA PANCREAS
     Dosage: 290 MG, CYCLIC (BY PORTABLE INFUSION PUMP WITHIN 46H)
     Route: 040
     Dates: start: 20160831, end: 20160831
  2. PLAVIX [Concomitant]
     Active Substance: CLOPIDOGREL BISULFATE
     Dosage: 75 MG, 1X/DAY
  3. EMEND [Concomitant]
     Active Substance: APREPITANT
     Dosage: 125 MG, CYCLIC
     Dates: start: 20160831, end: 20160831
  4. METHYLPREDNISOLONE MYLAN /00049602/ [Concomitant]
     Active Substance: METHYLPREDNISOLONE SODIUM SUCCINATE
     Dosage: 60 MG, UNK
     Dates: start: 20160831, end: 20160831
  5. CALCIUM LEVOFOLINATE [Concomitant]
     Active Substance: LEVOLEUCOVORIN CALCIUM
     Dosage: 292 MG, CYCLIC
     Dates: start: 20160831, end: 20160831
  6. ALDACTONE [Concomitant]
     Active Substance: SPIRONOLACTONE
     Dosage: 75 MG, 1X/DAY (MORNING)
  7. TAHOR [Concomitant]
     Active Substance: ATORVASTATIN CALCIUM
     Dosage: 40 MG, 1X/DAY
  8. LEVEMIR [Concomitant]
     Active Substance: INSULIN DETEMIR
     Dosage: 16 IU IN THE MORNING AND 10 IU IN THE EVENING
     Route: 058
  9. DAFALGAN [Concomitant]
     Active Substance: ACETAMINOPHEN
     Dosage: 500 MG, AS NEEDED
  10. EMEND [Concomitant]
     Active Substance: APREPITANT
     Dosage: 80 MG, CYCLIC
     Dates: start: 20160901, end: 20160902
  11. DIFFU K [Concomitant]
     Active Substance: POTASSIUM CHLORIDE
     Dosage: 600 MG, 1X/DAY
  12. ZOPHREN /00955301/ [Concomitant]
     Active Substance: ONDANSETRON
     Dosage: 8 MG, CYCLIC
     Dates: start: 20160831, end: 20160831
  13. TEMESTA /00273201/ [Concomitant]
     Active Substance: LORAZEPAM
     Dosage: 1 MG, 1X/DAY (EVENING)
  14. AMLOR [Concomitant]
     Active Substance: AMLODIPINE BESYLATE
     Dosage: 5 MG, 1X/DAY
  15. ZYLORIC [Concomitant]
     Active Substance: ALLOPURINOL
     Dosage: 100 MG, 1X/DAY
  16. FLUOROURACIL ACCORD [Suspect]
     Active Substance: FLUOROURACIL
     Dosage: 3.5 G, CYCLIC
     Route: 041
     Dates: start: 20160831, end: 20160831
  17. OXALIPLATIN HOSPIRA [Suspect]
     Active Substance: OXALIPLATIN
     Dosage: 120 MG, CYCLIC
     Route: 041
     Dates: start: 20160831, end: 20160831

REACTIONS (2)
  - Pancytopenia [Recovered/Resolved]
  - Diarrhoea [Recovered/Resolved]

NARRATIVE: CASE EVENT DATE: 20160908
